FAERS Safety Report 7446189-1 (Version None)
Quarter: 2011Q2

REPORT INFORMATION
  Report Type: 
  Country: None (occurrence: None)
  Receive Date: 20110429
  Receipt Date: 20110420
  Transmission Date: 20111010
  Serious: Yes (Other)
  Sender: FDA-Public Use
  Company Number: CH-US-EMD SERONO, INC.-7033965

PATIENT
  Sex: Female
  Weight: 80 kg

DRUGS (5)
  1. ASPEGIC-CARDIO [Concomitant]
  2. RASILEX [Concomitant]
     Indication: HYPERTENSION
     Dates: start: 20080101
  3. LOVAZA [Concomitant]
     Dates: start: 20070101
  4. REBIF [Suspect]
     Indication: MULTIPLE SCLEROSIS
     Route: 058
     Dates: start: 20080326, end: 20101001
  5. VOLTAREN [Concomitant]
     Dates: start: 20080301

REACTIONS (3)
  - INTERVERTEBRAL DISC PROTRUSION [None]
  - ALOPECIA [None]
  - HYPOTHYROIDISM [None]
